FAERS Safety Report 4380669-0 (Version None)
Quarter: 2004Q2

REPORT INFORMATION
  Report Type: 
  Country: None (occurrence: None)
  Receive Date: 20040616
  Receipt Date: 20040602
  Transmission Date: 20050107
  Serious: Yes (Hospitalization)
  Sender: FDA-Public Use
  Company Number: 2004217235DE

PATIENT
  Sex: Male

DRUGS (1)
  1. ESTRACYT (ESTRAMUSTINE PHOSPHATE) CAPSULE [Suspect]
     Indication: PROSTATE CANCER

REACTIONS (3)
  - GASTRIC HAEMORRHAGE [None]
  - LIVER FUNCTION TEST ABNORMAL [None]
  - PROTHROMBIN TIME PROLONGED [None]
